FAERS Safety Report 5225684-X (Version None)
Quarter: 2007Q1

REPORT INFORMATION
  Report Type: 
  Country: None (occurrence: None)
  Receive Date: 20061201
  Receipt Date: 20060801
  Transmission Date: 20070707
  Serious: No
  Sender: FDA-Public Use
  Company Number: US200607002933

PATIENT
  Age: 58 Year
  Sex: Male
  Weight: 135.6 kg

DRUGS (10)
  1. CYMBALTA [Suspect]
     Dosage: 60 MG
     Dates: start: 20060501, end: 20060703
  2. EZETIMIBE (EZETIMIBE) [Concomitant]
  3. SIMVASTATIN [Concomitant]
  4. CLONAZEPAM [Concomitant]
  5. ASA (ASPIRIN (ACETYLSALICYLIC ACID) UNKNOWN FORMULATION) [Concomitant]
  6. LISINOPRIL AND HYDROCHLOROTHIAZIDE [Concomitant]
  7. ATENOLOL [Concomitant]
  8. CATAPRES-TTO (CLONIDINE) [Concomitant]
  9. POTASSIUM CHLORIDE (POTASSIUM CHLORIDE UNKNOWN FORMULATION) [Concomitant]
  10. PAXIL [Concomitant]

REACTIONS (1)
  - BLOOD PRESSURE INCREASED [None]
